FAERS Safety Report 9156657 (Version 1)
Quarter: 2013Q1

REPORT INFORMATION
  Report Type: Spontaneous
  Country: None (occurrence: None)
  Receive Date: 20130206
  Receipt Date: 20130206
  Transmission Date: 20140127
  Serious: Yes (Other)
  Sender: FDA-Public Use
  Company Number: EUS-2013-00036

PATIENT
  Age: 5 Year
  Sex: Male

DRUGS (3)
  1. ERWINASE (ASPARAGINASE) [Suspect]
     Indication: ACUTE LYMPHOCYTIC LEUKAEMIA
     Dosage: 15,430 U, INTRAVENOUS (NOT OTHERWISE SPECIFIED)
     Route: 042
     Dates: start: 20121120, end: 20121120
  2. VINCRISTINE (VINCRISTINE) (VINCRISTINE) [Concomitant]
  3. METHOTREXATE (METHOTREXATE) (METHOTREXATE) [Concomitant]

REACTIONS (4)
  - Pallor [None]
  - Abdominal pain [None]
  - Vomiting [None]
  - Drug hypersensitivity [None]
